FAERS Safety Report 9523847 (Version 1)
Quarter: 2013Q3

REPORT INFORMATION
  Report Type: Spontaneous
  Country: US (occurrence: None)
  Receive Date: 20130912
  Receipt Date: 20130912
  Transmission Date: 20140515
  Serious: Yes (Other)
  Sender: FDA-Public Use
  Company Number: None

PATIENT
  Age: 45 Year
  Sex: Female

DRUGS (1)
  1. APLISOL [Suspect]
     Indication: TUBERCULOSIS
     Dosage: .10, X1, SC
     Route: 058
     Dates: start: 20130903

REACTIONS (5)
  - Chest discomfort [None]
  - Malaise [None]
  - Pyrexia [None]
  - Flushing [None]
  - Rash pustular [None]
